FAERS Safety Report 6810940-1 (Version None)
Quarter: 2010Q2

REPORT INFORMATION
  Report Type: 
  Country: None (occurrence: None)
  Receive Date: 20100630
  Receipt Date: 20081025
  Transmission Date: 20101027
  Serious: No
  Sender: FDA-Public Use
  Company Number: US-PFIZER INC-2008077937

PATIENT
  Sex: Female
  Weight: 63.636 kg

DRUGS (3)
  1. ESTRING [Suspect]
     Indication: HORMONE LEVEL ABNORMAL
     Dates: start: 20080825, end: 20080914
  2. ESTRING [Suspect]
     Indication: VAGINAL DISORDER
  3. BENADRYL [Suspect]
     Indication: PRURITUS
     Dates: start: 20080914

REACTIONS (4)
  - DIARRHOEA [None]
  - HYPERSENSITIVITY [None]
  - PRURITUS [None]
  - RASH [None]
